FAERS Safety Report 11773708 (Version 1)
Quarter: 2015Q4

REPORT INFORMATION
  Report Type: Spontaneous
  Country: US (occurrence: US)
  Receive Date: 20151124
  Receipt Date: 20151124
  Transmission Date: 20160304
  Serious: No
  Sender: FDA-Public Use
  Company Number: US-BAYER-2015-470172

PATIENT
  Age: 42 Year
  Sex: Male
  Weight: 112.4 kg

DRUGS (1)
  1. MIRALAX [Suspect]
     Active Substance: POLYETHYLENE GLYCOL 3350
     Indication: UNEVALUABLE EVENT
     Dosage: UNK

REACTIONS (2)
  - Intercepted drug prescribing error [Unknown]
  - Intercepted medication error [None]
